FAERS Safety Report 9117936 (Version 1)
Quarter: 2013Q1

REPORT INFORMATION
  Report Type: Spontaneous
  Country: AU (occurrence: AU)
  Receive Date: 20130208
  Receipt Date: 20130208
  Transmission Date: 20140127
  Serious: Yes (Other)
  Sender: FDA-Public Use
  Company Number: AU-ROCHE-1189277

PATIENT
  Age: 68 Year
  Sex: Female

DRUGS (4)
  1. AVASTIN [Suspect]
     Indication: COLON NEOPLASM
     Route: 065
  2. FLUOROURACIL [Concomitant]
  3. FOLINIC ACID [Concomitant]
  4. IRINOTECAN [Concomitant]

REACTIONS (1)
  - Disease progression [Unknown]
